FAERS Safety Report 7400300-7 (Version None)
Quarter: 2011Q2

REPORT INFORMATION
  Report Type: 
  Country: None (occurrence: None)
  Receive Date: 20110407
  Receipt Date: 20110331
  Transmission Date: 20111010
  Serious: Yes (Other)
  Sender: FDA-Public Use
  Company Number: CA-US-EMD SERONO, INC.-7032288

PATIENT
  Sex: Male

DRUGS (6)
  1. REBIF [Suspect]
     Indication: RELAPSING-REMITTING MULTIPLE SCLEROSIS
     Dates: start: 20101201, end: 20110101
  2. WELBUTRIN XL (WELLBUTRIN XL) [Concomitant]
  3. ALTACE [Concomitant]
  4. VITAMIN D [Concomitant]
  5. LIPITOR [Concomitant]
  6. REBIF [Suspect]
     Dates: start: 20110101, end: 20110316

REACTIONS (8)
  - VENOUS OCCLUSION [None]
  - ARTERIAL STENOSIS [None]
  - FATIGUE [None]
  - DEPRESSION [None]
  - INFLUENZA LIKE ILLNESS [None]
  - VENOUS INSUFFICIENCY [None]
  - FEELING ABNORMAL [None]
  - MUSCLE SPASTICITY [None]
